FAERS Safety Report 10040136 (Version 2)
Quarter: 2014Q1

REPORT INFORMATION
  Report Type: Spontaneous
  Country: US (occurrence: US)
  Receive Date: 20140326
  Receipt Date: 20140326
  Transmission Date: 20141002
  Serious: Yes (Disabling)
  Sender: FDA-Public Use
  Company Number: US-GE HEALTHCARE MEDICAL DIAGNOSTICS-OSCN-PR-0903S-0145

PATIENT
  Age: 49 Year
  Sex: Female

DRUGS (10)
  1. OMNISCAN [Suspect]
     Indication: RADICULOPATHY
     Route: 042
     Dates: start: 20030319, end: 20030319
  2. OMNISCAN [Suspect]
     Indication: RADICULOPATHY
     Route: 042
     Dates: start: 20040616, end: 20040616
  3. OMNISCAN [Suspect]
     Indication: BACK PAIN
     Route: 042
     Dates: start: 20050914, end: 20050914
  4. OMNISCAN [Suspect]
     Indication: CONVULSION
     Route: 042
     Dates: start: 20060806, end: 20060806
  5. OMNISCAN [Suspect]
     Indication: PYREXIA
     Route: 042
     Dates: start: 20060907, end: 20060907
  6. OMNISCAN [Suspect]
     Indication: BACK PAIN
  7. MAGNEVIST [Suspect]
     Indication: TINNITUS
     Route: 042
     Dates: start: 19990126, end: 19990126
  8. MAGNEVIST [Suspect]
     Indication: HEADACHE
  9. LEVAQUIN [Concomitant]
  10. EPOGEN [Concomitant]

REACTIONS (1)
  - Nephrogenic systemic fibrosis [Not Recovered/Not Resolved]
